FAERS Safety Report 8011751-4 (Version None)
Quarter: 2011Q4

REPORT INFORMATION
  Report Type: 
  Country: None (occurrence: None)
  Receive Date: 20111228
  Receipt Date: 20111222
  Transmission Date: 20120403
  Serious: No
  Sender: FDA-Public Use
  Company Number: JP-ABBOTT-11P-087-0702864-00

PATIENT
  Age: 60 Year
  Sex: Male
  Weight: 66.8 kg

DRUGS (11)
  1. AZATHIOPRINE [Concomitant]
     Indication: PRODUCT USED FOR UNKNOWN INDICATION
  2. HUMIRA [Suspect]
     Dates: start: 20101222, end: 20101222
  3. MESALAMINE [Concomitant]
     Indication: CROHN'S DISEASE
  4. HUMIRA [Suspect]
     Dates: start: 20110104, end: 20110131
  5. POLYCARBOPHIL CALCIUM [Concomitant]
     Indication: CROHN'S DISEASE
  6. CLOSTRIDIUM BUTYRICUM [Concomitant]
     Indication: CROHN'S DISEASE
  7. HUMIRA [Suspect]
     Indication: CROHN'S DISEASE
     Route: 058
     Dates: start: 20101208, end: 20101208
  8. TPN [Concomitant]
     Indication: CROHN'S DISEASE
     Route: 048
  9. ALBUMIN TANNATE [Concomitant]
     Indication: CROHN'S DISEASE
  10. CODEINE PHOSPHATE [Concomitant]
     Indication: CROHN'S DISEASE
     Route: 048
  11. HUMIRA [Suspect]

REACTIONS (2)
  - EYELID OEDEMA [None]
  - HYPOACUSIS [None]
